FAERS Safety Report 7350994-X (Version None)
Quarter: 2011Q1

REPORT INFORMATION
  Report Type: 
  Country: None (occurrence: None)
  Receive Date: 20110314
  Receipt Date: 20110304
  Transmission Date: 20110831
  Serious: Yes (Hospitalization, Other)
  Sender: FDA-Public Use
  Company Number: US-ASTRAZENECA-2011SE06747

PATIENT
  Age: 38 Year
  Sex: Female
  Weight: 158 kg

DRUGS (8)
  1. ZONEGRAN [Concomitant]
  2. SEROQUEL [Suspect]
     Indication: SLEEP DISORDER
     Route: 048
  3. SEROQUEL [Suspect]
     Indication: MAJOR DEPRESSION
     Route: 048
  4. AMBIEN [Concomitant]
  5. LIDODERM [Concomitant]
  6. ELAVIL [Concomitant]
  7. NEURONTIN [Concomitant]
  8. KLONOPIN [Concomitant]

REACTIONS (6)
  - TRAUMATIC BRAIN INJURY [None]
  - AMNESIA [None]
  - ROAD TRAFFIC ACCIDENT [None]
  - CONVULSION [None]
  - MULTIPLE INJURIES [None]
  - NERVE INJURY [None]
